FAERS Safety Report 8877016 (Version 1)
Quarter: 2012Q4

REPORT INFORMATION
  Report Type: 
  Country: US (occurrence: US)
  Receive Date: 20121023
  Receipt Date: 20121023
  Transmission Date: 20130627
  Serious: No
  Sender: FDA-Public Use
  Company Number: US-AMGEN-USASP2012055862

PATIENT
  Age: 52 Year
  Sex: Male
  Weight: 100.68 kg

DRUGS (5)
  1. ENBREL [Suspect]
     Indication: PRODUCT USED FOR UNKNOWN INDICATION
     Dosage: 50 mg, qwk
     Route: 058
  2. GABAPENTIN [Concomitant]
     Dosage: 600 mg, UNK
  3. FOLIC ACID [Concomitant]
     Dosage: 1 mg, UNK
  4. METHOTREXATE [Concomitant]
     Dosage: INJ 1 GM
  5. VITAMIN B COMPLEX [Concomitant]
     Dosage: INJ 100

REACTIONS (1)
  - Influenza like illness [Unknown]
